FAERS Safety Report 6078676-5 (Version None)
Quarter: 2009Q1

REPORT INFORMATION
  Report Type: 
  Country: None (occurrence: None)
  Receive Date: 20090216
  Receipt Date: 20090204
  Transmission Date: 20090719
  Serious: Yes (Other)
  Sender: FDA-Public Use
  Company Number: PHEH2007US00518

PATIENT
  Sex: Male

DRUGS (5)
  1. AREDIA [Suspect]
  2. EULEXIN [Concomitant]
  3. LISINOPRIL [Concomitant]
  4. LUPRON [Concomitant]
  5. ZYRTEC [Concomitant]

REACTIONS (8)
  - ANXIETY [None]
  - BONE DISORDER [None]
  - DECREASED INTEREST [None]
  - DENTAL CARIES [None]
  - GENERAL PHYSICAL HEALTH DETERIORATION [None]
  - OSTEONECROSIS [None]
  - PAIN [None]
  - PERIODONTAL DISEASE [None]
